FAERS Safety Report 8082941-X (Version None)
Quarter: 2012Q1

REPORT INFORMATION
  Report Type: 
  Country: None (occurrence: None)
  Receive Date: 20120127
  Receipt Date: 20110308
  Transmission Date: 20120608
  Serious: No
  Sender: FDA-Public Use
  Company Number: US-ABBOTT-11P-163-0710243-00

PATIENT
  Age: 43 Year
  Sex: Female

DRUGS (4)
  1. HUMIRA [Suspect]
     Indication: CROHN'S DISEASE
     Dates: start: 20100801, end: 20110101
  2. PREDNISONE TAB [Concomitant]
     Indication: CROHN'S DISEASE
     Route: 048
  3. VITAMIN B-12 [Concomitant]
     Indication: PRODUCT USED FOR UNKNOWN INDICATION
  4. HUMIRA [Suspect]
     Dates: start: 20110101

REACTIONS (2)
  - DEVICE MALFUNCTION [None]
  - DRUG INEFFECTIVE [None]
